FAERS Safety Report 6170506-6 (Version None)
Quarter: 2009Q2

REPORT INFORMATION
  Report Type: 
  Country: None (occurrence: None)
  Receive Date: 20090427
  Receipt Date: 20090427
  Transmission Date: 20091009
  Serious: Yes (Life-Threatening, Hospitalization)
  Sender: FDA-Public Use
  Company Number: None

PATIENT
  Age: 86 Year
  Sex: Female

DRUGS (2)
  1. MIDAZOLAM HCL [Suspect]
     Indication: SEDATIVE THERAPY
     Dosage: 4MG IV OTO
     Route: 042
     Dates: start: 20090119
  2. FENTANYL [Suspect]
     Indication: PAIN
     Dosage: 300 MC IV OTO
     Route: 042
     Dates: start: 20090119

REACTIONS (3)
  - LETHARGY [None]
  - PULSE ABSENT [None]
  - RESPIRATORY ARREST [None]
